FAERS Safety Report 12755210 (Version 1)
Quarter: 2016Q3

REPORT INFORMATION
  Report Type: Spontaneous
  Country: US (occurrence: US)
  Receive Date: 20160916
  Receipt Date: 20160916
  Transmission Date: 20161109
  Serious: No
  Sender: FDA-Public Use
  Company Number: US-LUNDBECK-DKLU2018412

PATIENT
  Age: 9 Year
  Sex: Female

DRUGS (3)
  1. BANZEL [Concomitant]
     Active Substance: RUFINAMIDE
     Indication: PRODUCT USED FOR UNKNOWN INDICATION
     Route: 065
  2. ONFI [Suspect]
     Active Substance: CLOBAZAM
     Route: 048
     Dates: start: 201410
  3. ONFI [Suspect]
     Active Substance: CLOBAZAM
     Indication: EPILEPSY
     Route: 048
     Dates: start: 201410

REACTIONS (1)
  - Drug dose omission [Recovered/Resolved]

NARRATIVE: CASE EVENT DATE: 20160813
